FAERS Safety Report 16960617 (Version 1)
Quarter: 2019Q4

REPORT INFORMATION
  Report Type: Spontaneous
  Country: US (occurrence: US)
  Receive Date: 20190906
  Receipt Date: 20190906
  Transmission Date: 20200122
  Serious: Yes (Disabling)
  Sender: FDA-Public Use
  Company Number: None

PATIENT
  Age: 65 Year
  Sex: Male
  Weight: 74.84 kg

DRUGS (1)
  1. IMLYGIC [Suspect]
     Active Substance: TALIMOGENE LAHERPAREPVEC
     Indication: MALIGNANT MELANOMA
     Dosage: ?          OTHER DOSE:4 VACCINATIONS;OTHER FREQUENCY:7 SESSIONS;?

REACTIONS (6)
  - Skin laceration [None]
  - Necrosis [None]
  - Tumour rupture [None]
  - Leg amputation [None]
  - Cerebrovascular accident [None]
  - Sepsis [None]

NARRATIVE: CASE EVENT DATE: 20150901
